FAERS Safety Report 7372324-X (Version None)
Quarter: 2011Q1

REPORT INFORMATION
  Report Type: 
  Country: None (occurrence: None)
  Receive Date: 20110324
  Receipt Date: 20110314
  Transmission Date: 20110831
  Serious: Yes (Other)
  Sender: FDA-Public Use
  Company Number: B0705708A

PATIENT
  Sex: Female

DRUGS (12)
  1. ENDOXAN [Suspect]
     Indication: WEGENER'S GRANULOMATOSIS
     Dosage: 1020MG CYCLIC
     Route: 042
     Dates: start: 20110124, end: 20110124
  2. DIFFU K [Concomitant]
     Route: 065
  3. CORTANCYL [Concomitant]
     Route: 065
  4. LOXEN [Concomitant]
     Route: 065
  5. EMEND [Suspect]
     Route: 048
     Dates: start: 20110124, end: 20110126
  6. ZELITREX [Concomitant]
     Route: 065
  7. UROMITEXAN [Suspect]
     Dosage: 1200MG PER DAY
     Route: 048
     Dates: start: 20110124, end: 20110124
  8. BACTRIM [Concomitant]
     Route: 065
  9. ZOPHREN [Suspect]
     Indication: PREMEDICATION
     Dosage: 16MG SINGLE DOSE
     Route: 042
     Dates: start: 20110124, end: 20110124
  10. PARACETAMOL [Concomitant]
     Route: 065
  11. UROMITEXAN [Suspect]
     Dosage: 400MG CYCLIC
     Route: 042
     Dates: start: 20110124, end: 20110124
  12. CACIT D3 [Concomitant]
     Route: 065

REACTIONS (4)
  - HYPOTHERMIA [None]
  - HYPOTENSION [None]
  - HYPERTENSION [None]
  - CHILLS [None]
